FAERS Safety Report 21622051 (Version 1)
Quarter: 2022Q4

REPORT INFORMATION
  Report Type: Spontaneous
  Country: GB (occurrence: GB)
  Receive Date: 20221121
  Receipt Date: 20221121
  Transmission Date: 20230112
  Serious: Yes (Hospitalization, Other)
  Sender: FDA-Public Use
  Company Number: GB-MHRA-MED-202211111159371900-LPWRQ

PATIENT
  Sex: Male

DRUGS (1)
  1. TAMOXIFEN [Suspect]
     Active Substance: TAMOXIFEN
     Indication: Product used for unknown indication
     Dosage: 20 MILLIGRAM, AM(20MG EVERY MORNING)
     Route: 065

REACTIONS (2)
  - Acute myocardial infarction [Recovered/Resolved with Sequelae]
  - Product dispensing error [Unknown]

NARRATIVE: CASE EVENT DATE: 20221108
